FAERS Safety Report 5316727-3 (Version None)
Quarter: 2007Q2

REPORT INFORMATION
  Report Type: 
  Country: None (occurrence: None)
  Receive Date: 20070504
  Receipt Date: 20070427
  Transmission Date: 20071010
  Serious: Yes (Hospitalization)
  Sender: FDA-Public Use
  Company Number: 2007SE02402

PATIENT
  Age: 28519 Day
  Sex: Male
  Weight: 68 kg

DRUGS (3)
  1. BLOPRESS [Suspect]
     Route: 048
     Dates: start: 20001027, end: 20070101
  2. ACTOS [Suspect]
     Indication: DIABETES MELLITUS NON-INSULIN-DEPENDENT
     Route: 048
     Dates: start: 20060904, end: 20070101
  3. PAMILCON [Suspect]
     Route: 048
     Dates: start: 20001027, end: 20070101

REACTIONS (1)
  - CEREBRAL INFARCTION [None]
